FAERS Safety Report 19955192 (Version 1)
Quarter: 2021Q4

REPORT INFORMATION
  Report Type: Spontaneous
  Country: IT (occurrence: IT)
  Receive Date: 20211013
  Receipt Date: 20211013
  Transmission Date: 20220303
  Serious: Yes (Other)
  Sender: FDA-Public Use
  Company Number: IT-TAKEDA-2021TUS062776

PATIENT
  Age: 10 Year
  Sex: Male

DRUGS (2)
  1. MESALAMINE [Suspect]
     Active Substance: MESALAMINE
     Indication: Inflammatory bowel disease
     Dosage: UNK
     Route: 054
  2. INFLIXIMAB-ABDA [Suspect]
     Active Substance: INFLIXIMAB-ABDA
     Indication: Inflammatory bowel disease
     Route: 065

REACTIONS (6)
  - Acute kidney injury [Recovered/Resolved]
  - Contraindicated product administered [Recovered/Resolved]
  - Product use in unapproved indication [Recovered/Resolved]
  - Off label use [Recovered/Resolved]
  - Product use issue [Recovered/Resolved]
  - Labelled drug-disease interaction medication error [Recovered/Resolved]
